FAERS Safety Report 5002394-5 (Version None)
Quarter: 2006Q2

REPORT INFORMATION
  Report Type: 
  Country: None (occurrence: None)
  Receive Date: 20060512
  Receipt Date: 20060428
  Transmission Date: 20061013
  Serious: Yes (Disabling)
  Sender: FDA-Public Use
  Company Number: US017424

PATIENT
  Age: 51 Year
  Sex: Female
  Weight: 58.9676 kg

DRUGS (2)
  1. PROVIGIL [Suspect]
     Indication: FATIGUE
     Dosage: 200 MG QD ORAL
     Route: 048
  2. PROVIGIL [Suspect]
     Indication: FIBROMYALGIA
     Dosage: 200 MG QD ORAL
     Route: 048

REACTIONS (5)
  - DEAFNESS UNILATERAL [None]
  - HERPES VIRUS INFECTION [None]
  - NAUSEA [None]
  - TINNITUS [None]
  - VERTIGO [None]
